FAERS Safety Report 25679084 (Version 1)
Quarter: 2025Q3

REPORT INFORMATION
  Report Type: Spontaneous
  Country: EU (occurrence: EU)
  Receive Date: 20250814
  Receipt Date: 20250814
  Transmission Date: 20251020
  Serious: Yes (Hospitalization, Other)
  Sender: CADILA
  Company Number: EU-CPL-005633

PATIENT
  Age: 76 Year
  Sex: Female

DRUGS (5)
  1. OLMESARTAN MEDOXOMIL [Suspect]
     Active Substance: OLMESARTAN MEDOXOMIL
     Indication: Hypertension
  2. BISOPROLOL [Concomitant]
     Active Substance: BISOPROLOL
  3. APIXABAN [Concomitant]
     Active Substance: APIXABAN
  4. DIGOXIN [Concomitant]
     Active Substance: DIGOXIN
  5. OLMESARTAN MEDOXOMIL [Suspect]
     Active Substance: OLMESARTAN MEDOXOMIL
     Indication: Hypertension

REACTIONS (2)
  - Gastrointestinal disorder [Recovered/Resolved]
  - Chronic kidney disease [Recovering/Resolving]
